FAERS Safety Report 17763353 (Version 2)
Quarter: 2020Q2

REPORT INFORMATION
  Report Type: Spontaneous
  Country: FR (occurrence: FR)
  Receive Date: 20200509
  Receipt Date: 20200514
  Transmission Date: 20200714
  Serious: Yes (Other)
  Sender: FDA-Public Use
  Company Number: FR-ROCHE-2597532

PATIENT
  Age: 57 Year
  Sex: Male

DRUGS (5)
  1. TAVANIC [Concomitant]
     Active Substance: LEVOFLOXACIN
     Indication: PRODUCT USED FOR UNKNOWN INDICATION
     Dosage: FIRST 10 DAYS TREATMENT
     Route: 065
     Dates: start: 20200127
  2. CORTISONE [Suspect]
     Active Substance: CORTISONE
     Indication: PRODUCT USED FOR UNKNOWN INDICATION
     Route: 065
  3. LUCENTIS [Suspect]
     Active Substance: RANIBIZUMAB
     Indication: PRODUCT USED FOR UNKNOWN INDICATION
     Route: 031
     Dates: start: 20200213, end: 20200213
  4. TAVANIC [Concomitant]
     Active Substance: LEVOFLOXACIN
     Dosage: SECOND 10 DAYS TREATMENT
     Route: 065
     Dates: start: 20200208
  5. OZURDEX [Concomitant]
     Active Substance: DEXAMETHASONE
     Route: 065
     Dates: start: 201911

REACTIONS (3)
  - Retinal detachment [Unknown]
  - Necrotising retinitis [Unknown]
  - Blindness [Unknown]
